FAERS Safety Report 22215058 (Version 1)
Quarter: 2023Q2

REPORT INFORMATION
  Report Type: Spontaneous
  Country: GB (occurrence: GB)
  Receive Date: 20230415
  Receipt Date: 20230415
  Transmission Date: 20230722
  Serious: Yes (Other)
  Sender: FDA-Public Use
  Company Number: None

PATIENT
  Age: 74 Year
  Sex: Male
  Weight: 182 kg

DRUGS (8)
  1. ATORVASTATIN [Suspect]
     Active Substance: ATORVASTATIN
     Indication: Hypercholesterolaemia
     Dates: start: 20210829
  2. BISOPROLOL [Concomitant]
     Active Substance: BISOPROLOL
     Dates: start: 202108
  3. LOSARTAN [Concomitant]
     Active Substance: LOSARTAN
  4. RIVAROXABAN [Concomitant]
     Active Substance: RIVAROXABAN
     Dosage: FOR 12 MONTHS
     Dates: start: 202108, end: 202208
  5. RAMIPRIL [Concomitant]
     Active Substance: RAMIPRIL
     Dates: start: 202108, end: 202111
  6. OMEPRAZOLE [Concomitant]
     Active Substance: OMEPRAZOLE
     Dates: start: 202108, end: 202111
  7. LANSOPRAZOLE [Concomitant]
     Active Substance: LANSOPRAZOLE
  8. CLOPIDOGREL [Concomitant]
     Active Substance: CLOPIDOGREL BISULFATE
     Dates: start: 202108, end: 202208

REACTIONS (3)
  - Burning sensation [Not Recovered/Not Resolved]
  - Paraesthesia [Unknown]
  - Pruritus [Unknown]

NARRATIVE: CASE EVENT DATE: 20221220
